FAERS Safety Report 25799987 (Version 1)
Quarter: 2025Q3

REPORT INFORMATION
  Report Type: Spontaneous
  Country: CA (occurrence: CA)
  Receive Date: 20250914
  Receipt Date: 20250914
  Transmission Date: 20251020
  Serious: Yes (Other)
  Sender: JOHNSON AND JOHNSON
  Company Number: CA-JNJFOC-20250915514

PATIENT
  Age: 76 Year
  Sex: Male

DRUGS (1)
  1. USTEKINUMAB [Suspect]
     Active Substance: USTEKINUMAB
     Indication: Crohn^s disease
     Route: 058

REACTIONS (5)
  - Diarrhoea [Recovered/Resolved]
  - Dizziness [Recovering/Resolving]
  - Fall [Recovering/Resolving]
  - Headache [Recovering/Resolving]
  - Lumbar vertebral fracture [Recovering/Resolving]
